FAERS Safety Report 14342185 (Version 1)
Quarter: 2018Q1

REPORT INFORMATION
  Report Type: Spontaneous
  Country: US (occurrence: US)
  Receive Date: 20180102
  Receipt Date: 20180102
  Transmission Date: 20180509
  Serious: No
  Sender: FDA-Public Use
  Company Number: US-TEVA-802191ACC

PATIENT
  Sex: Female

DRUGS (2)
  1. DULOXETINE. [Suspect]
     Active Substance: DULOXETINE
  2. DULOXETINE. [Suspect]
     Active Substance: DULOXETINE
     Indication: MUSCULOSKELETAL PAIN
     Dates: start: 201706

REACTIONS (2)
  - Drug effect incomplete [Unknown]
  - Diarrhoea [Not Recovered/Not Resolved]

NARRATIVE: CASE EVENT DATE: 201707
